FAERS Safety Report 6959822-5 (Version None)
Quarter: 2010Q3

REPORT INFORMATION
  Report Type: 
  Country: None (occurrence: None)
  Receive Date: 20100901
  Receipt Date: 20100824
  Transmission Date: 20110219
  Serious: No
  Sender: FDA-Public Use
  Company Number: US-BIOGENIDEC-2010BI029760

PATIENT
  Age: 41 Year
  Sex: Female

DRUGS (2)
  1. TYSABRI [Suspect]
     Indication: MULTIPLE SCLEROSIS
     Route: 042
     Dates: start: 20061221, end: 20080213
  2. TYSABRI [Suspect]
     Route: 042
     Dates: start: 20080925

REACTIONS (4)
  - DIPLOPIA [None]
  - MULTIPLE SCLEROSIS [None]
  - MYALGIA [None]
  - TRIGEMINAL NEURALGIA [None]
